FAERS Safety Report 23027242 (Version 3)
Quarter: 2023Q4

REPORT INFORMATION
  Report Type: Spontaneous
  Country: US (occurrence: US)
  Receive Date: 20231004
  Receipt Date: 20231115
  Transmission Date: 20240110
  Serious: No
  Sender: FDA-Public Use
  Company Number: US-PFIZER INC-202300298801

PATIENT
  Age: 7 Year
  Sex: Female
  Weight: 20.87 kg

DRUGS (2)
  1. GENOTROPIN [Suspect]
     Active Substance: SOMATROPIN
     Indication: Growth hormone deficiency
     Dosage: UNK (TAKES IT AT NIGHT BEFORE BED 6 DAYS A WEEK)
     Dates: start: 202307
  2. KEFLEX [Concomitant]
     Active Substance: CEPHALEXIN
     Indication: Kidney infection
     Dosage: 10 ML, 2X/DAY

REACTIONS (2)
  - Device malfunction [Unknown]
  - Drug dose omission by device [Unknown]
